FAERS Safety Report 8938325 (Version 1)
Quarter: 2012Q4

REPORT INFORMATION
  Report Type: 
  Country: US (occurrence: US)
  Receive Date: 20121130
  Receipt Date: 20121130
  Transmission Date: 20130627
  Serious: No
  Sender: FDA-Public Use
  Company Number: US-ASTRAZENECA-2011SE12936

PATIENT
  Age: 65 Year
  Sex: Male
  Weight: 90.7 kg

DRUGS (9)
  1. CRESTOR [Suspect]
     Indication: BLOOD CHOLESTEROL INCREASED
     Route: 048
     Dates: start: 201007
  2. CRESTOR [Suspect]
     Indication: BLOOD CHOLESTEROL INCREASED
     Route: 048
     Dates: start: 2010
  3. CRESTOR [Suspect]
     Indication: BLOOD CHOLESTEROL INCREASED
     Route: 048
     Dates: start: 2011
  4. ATENOLOL [Suspect]
     Indication: BLOOD PRESSURE ABNORMAL
     Route: 048
  5. ATENOLOL [Suspect]
     Indication: ADVERSE EVENT
     Route: 048
  6. ASPIRIN [Concomitant]
     Indication: CARDIAC DISORDER
  7. CO-Q-10 ENZYME [Concomitant]
     Indication: CARDIAC DISORDER
  8. SEVERAL HEART MEDICATION [Concomitant]
     Indication: CARDIAC DISORDER
  9. CALCIUM IN ORANGE JUICE [Concomitant]

REACTIONS (10)
  - Gastric disorder [Unknown]
  - Adverse event [Unknown]
  - Dyspepsia [Unknown]
  - Muscle disorder [Unknown]
  - Myalgia [Unknown]
  - Swollen tongue [Not Recovered/Not Resolved]
  - Asthenia [Unknown]
  - Abdominal pain upper [Unknown]
  - Off label use [Unknown]
  - Intentional drug misuse [Unknown]
